FAERS Safety Report 20017477 (Version 2)
Quarter: 2021Q4

REPORT INFORMATION
  Report Type: Report from Study
  Country: GB (occurrence: GB)
  Receive Date: 20211030
  Receipt Date: 20211203
  Transmission Date: 20220303
  Serious: Yes (Hospitalization)
  Sender: FDA-Public Use
  Company Number: GB-ROCHE-2144358

PATIENT
  Age: 65 Year
  Sex: Female

DRUGS (39)
  1. CAPECITABINE [Suspect]
     Active Substance: CAPECITABINE
     Indication: Breast cancer metastatic
     Dosage: 2150 MG
     Route: 048
     Dates: start: 20180411, end: 20180605
  2. CAPECITABINE [Suspect]
     Active Substance: CAPECITABINE
     Indication: Breast cancer metastatic
     Route: 048
     Dates: start: 20180321, end: 20180403
  3. CAPECITABINE [Suspect]
     Active Substance: CAPECITABINE
     Route: 048
     Dates: start: 20180228, end: 20180313
  4. CAPECITABINE [Suspect]
     Active Substance: CAPECITABINE
     Dosage: 2150 MG
     Route: 048
     Dates: start: 20180411, end: 20180605
  5. CAPECITABINE [Suspect]
     Active Substance: CAPECITABINE
     Dosage: 4600 MG
     Route: 048
     Dates: start: 20180228, end: 20180313
  6. CAPECITABINE [Suspect]
     Active Substance: CAPECITABINE
     Dosage: 4300 MG
     Route: 048
     Dates: start: 20180321, end: 20180403
  7. CAPECITABINE [Suspect]
     Active Substance: CAPECITABINE
     Dosage: 4300 MG
     Route: 048
     Dates: start: 20180321, end: 20180403
  8. CAPECITABINE [Suspect]
     Active Substance: CAPECITABINE
     Route: 048
     Dates: start: 20180411, end: 20180605
  9. CAPECITABINE [Suspect]
     Active Substance: CAPECITABINE
     Dosage: 4600 MG
     Route: 048
     Dates: start: 20180228, end: 20180313
  10. LETROZOLE [Suspect]
     Active Substance: LETROZOLE
     Indication: Breast cancer metastatic
     Dosage: 2.5 MILLIGRAM DAILY;
     Route: 048
     Dates: start: 20170718, end: 20180228
  11. TRASTUZUMAB [Suspect]
     Active Substance: TRASTUZUMAB
     Indication: Breast cancer metastatic
     Dosage: 600 MG
     Route: 058
     Dates: start: 20180228
  12. HYALURONIDASE (HUMAN RECOMBINANT) [Suspect]
     Active Substance: HYALURONIDASE (HUMAN RECOMBINANT)
     Indication: Breast cancer metastatic
     Route: 058
     Dates: start: 20180228
  13. ALTEPLASE [Concomitant]
     Active Substance: ALTEPLASE
     Indication: Infectious pleural effusion
     Dosage: 40 MILLIGRAM DAILY;
     Route: 065
     Dates: start: 20181005, end: 20181007
  14. BENZYDAMINE [Concomitant]
     Active Substance: BENZYDAMINE
     Dosage: 10 ML
     Route: 061
     Dates: start: 20180320, end: 20180627
  15. COCODAMOL [Concomitant]
     Active Substance: ACETAMINOPHEN\CODEINE PHOSPHATE
     Dosage: 530 MG
     Route: 048
     Dates: start: 20180215
  16. CYCLIZINE [Concomitant]
     Active Substance: CYCLIZINE
     Dosage: 50 MG
     Route: 048
     Dates: start: 20180216, end: 20180217
  17. DALTEPARIN [Concomitant]
     Active Substance: DALTEPARIN
     Dosage: 5000 IU (INTERNATIONAL UNIT) DAILY;
     Route: 058
     Dates: start: 20180606, end: 20180607
  18. FLUCLOXACILLIN [Concomitant]
     Active Substance: FLUCLOXACILLIN
     Indication: Infectious pleural effusion
     Dosage: 1000 MILLIGRAM DAILY;
     Route: 048
     Dates: start: 20181018, end: 20181115
  19. FLUCLOXACILLIN [Concomitant]
     Active Substance: FLUCLOXACILLIN
     Dosage: 4 GRAM DAILY;
     Route: 042
     Dates: start: 20190107, end: 20190110
  20. FLUCLOXACILLIN [Concomitant]
     Active Substance: FLUCLOXACILLIN
     Dosage: 4 GRAM DAILY;
     Route: 042
     Dates: start: 20181005, end: 20181008
  21. FLUCLOXACILLIN [Concomitant]
     Active Substance: FLUCLOXACILLIN
     Dosage: 2000 MILLIGRAM DAILY;
     Route: 048
     Dates: start: 20180924, end: 20181004
  22. FLUCLOXACILLIN [Concomitant]
     Active Substance: FLUCLOXACILLIN
     Dosage: 4 GRAM DAILY;
     Route: 048
     Dates: start: 20190110, end: 20190116
  23. FLUCLOXACILLIN [Concomitant]
     Active Substance: FLUCLOXACILLIN
     Dosage: 2000 MILLIGRAM DAILY;
     Route: 048
     Dates: start: 20180316, end: 20180330
  24. FLUCLOXACILLIN [Concomitant]
     Active Substance: FLUCLOXACILLIN
     Dosage: 4 GRAM DAILY;
     Route: 048
     Dates: start: 201806, end: 201806
  25. FLUCLOXACILLIN [Concomitant]
     Active Substance: FLUCLOXACILLIN
     Dosage: 2000 MILLIGRAM DAILY;
     Route: 048
     Dates: start: 20190117
  26. FLUCLOXACILLIN [Concomitant]
     Active Substance: FLUCLOXACILLIN
     Dosage: 2000 MILLIGRAM DAILY;
     Route: 048
     Dates: start: 20181008, end: 20181017
  27. LOPERAMIDE [Concomitant]
     Active Substance: LOPERAMIDE
     Dosage: 2 MG
     Route: 048
     Dates: start: 20180320
  28. MORPHINE SULFATE [Concomitant]
     Active Substance: MORPHINE SULFATE
     Indication: Analgesic therapy
     Dosage: 5 MILLIGRAM DAILY;
     Route: 048
     Dates: start: 20180604, end: 20180605
  29. ACETAMINOPHEN [Concomitant]
     Active Substance: ACETAMINOPHEN
     Dosage: 1 GRAM
     Route: 048
     Dates: start: 20180129
  30. PULMOZYME [Concomitant]
     Active Substance: DORNASE ALFA
     Indication: Infectious pleural effusion
     Dosage: 10 MILLIGRAM DAILY;
     Route: 065
     Dates: start: 20190107, end: 20190110
  31. PULMOZYME [Concomitant]
     Active Substance: DORNASE ALFA
     Dosage: 20 MILLIGRAM DAILY;
     Route: 065
     Dates: start: 20181005, end: 20181007
  32. POLYETHYLENE GLYCOL 3350\POTASSIUM CHLORIDE\SODIUM BICARBONATE\SODIUM [Concomitant]
     Active Substance: POLYETHYLENE GLYCOL 3350\POTASSIUM CHLORIDE\SODIUM BICARBONATE\SODIUM CHLORIDE
  33. PROCHLORPERAZINE MALEATE [Concomitant]
     Active Substance: PROCHLORPERAZINE MALEATE
  34. ONDANSETRON [Concomitant]
     Active Substance: ONDANSETRON
  35. ENOXAPARIN [Concomitant]
     Active Substance: ENOXAPARIN
  36. CASPOFUNGIN [Concomitant]
     Active Substance: CASPOFUNGIN
  37. OMEPRAZOLE [Concomitant]
     Active Substance: OMEPRAZOLE
  38. METRONIDAZOLE [Concomitant]
     Active Substance: METRONIDAZOLE
  39. AMOXICILLIN [Concomitant]
     Active Substance: AMOXICILLIN

REACTIONS (1)
  - Device related infection [Recovered/Resolved with Sequelae]

NARRATIVE: CASE EVENT DATE: 20180603
